FAERS Safety Report 17266623 (Version 1)
Quarter: 2020Q1

REPORT INFORMATION
  Report Type: Spontaneous
  Country: US (occurrence: US)
  Receive Date: 20200113
  Receipt Date: 20200113
  Transmission Date: 20200409
  Serious: Yes (Hospitalization)
  Sender: FDA-Public Use
  Company Number: None

PATIENT
  Age: 64 Year
  Sex: Male

DRUGS (3)
  1. BUPROPION 200MG SR [Concomitant]
     Dates: start: 20141027
  2. ENBREL [Suspect]
     Active Substance: ETANERCEPT
     Indication: RHEUMATOID ARTHRITIS
     Dosage: ?          OTHER FREQUENCY:ONCE WEEKLY;?
     Route: 058
     Dates: start: 20160202
  3. FLUOXETINE SOL 20MG/5ML [Concomitant]
     Dates: start: 20141027

REACTIONS (2)
  - Colonoscopy [None]
  - Therapy cessation [None]

NARRATIVE: CASE EVENT DATE: 20200101
